FAERS Safety Report 9390410 (Version 1)
Quarter: 2013Q3

REPORT INFORMATION
  Report Type: Spontaneous
  Country: US (occurrence: None)
  Receive Date: 20130701
  Receipt Date: 20130701
  Transmission Date: 20140515
  Serious: Yes (Life-Threatening, Hospitalization)
  Sender: FDA-Public Use
  Company Number: 2013AP006284

PATIENT
  Age: 53 Year
  Sex: Male

DRUGS (3)
  1. PANTOPRAZOLE SODIUM [Suspect]
     Indication: PROPHYLAXIS
     Route: 048
  2. DILTIAZEM [Concomitant]
  3. HEPARIN [Concomitant]

REACTIONS (4)
  - Torsade de pointes [None]
  - Hypomagnesaemia [None]
  - Ventricular tachycardia [None]
  - Unresponsive to stimuli [None]
